FAERS Safety Report 20492677 (Version 3)
Quarter: 2022Q2

REPORT INFORMATION
  Report Type: Spontaneous
  Country: US (occurrence: US)
  Receive Date: 20220219
  Receipt Date: 20220521
  Transmission Date: 20220721
  Serious: No
  Sender: FDA-Public Use
  Company Number: US-BRISTOL-MYERS SQUIBB COMPANY-BMS-2022-024644

PATIENT
  Age: 64 Year
  Sex: Male

DRUGS (1)
  1. ORENCIA [Suspect]
     Active Substance: ABATACEPT
     Indication: Rheumatoid arthritis
     Dosage: ONGOING
     Route: 058
     Dates: start: 20211202

REACTIONS (5)
  - Asthenia [Unknown]
  - COVID-19 [Recovered/Resolved]
  - Visual impairment [Unknown]
  - Vision blurred [Unknown]
  - Arthralgia [Unknown]
